FAERS Safety Report 5228422-X (Version None)
Quarter: 2007Q1

REPORT INFORMATION
  Report Type: 
  Country: None (occurrence: None)
  Receive Date: 20070205
  Receipt Date: 20061218
  Transmission Date: 20070707
  Serious: Yes (Other)
  Sender: FDA-Public Use
  Company Number: GB-BRISTOL-MYERS SQUIBB COMPANY-13590443

PATIENT
  Age: 72 Year
  Sex: Female

DRUGS (1)
  1. ERBITUX [Suspect]
     Indication: SQUAMOUS CELL CARCINOMA
     Route: 041

REACTIONS (2)
  - DEEP VEIN THROMBOSIS [None]
  - DERMATITIS ACNEIFORM [None]
